FAERS Safety Report 7737903-6 (Version None)
Quarter: 2011Q3

REPORT INFORMATION
  Report Type: 
  Country: None (occurrence: None)
  Receive Date: 20110908
  Receipt Date: 20110902
  Transmission Date: 20111222
  Serious: Yes (Other)
  Sender: FDA-Public Use
  Company Number: PHHY2011AU61269

PATIENT
  Age: 73 Year
  Sex: Female

DRUGS (5)
  1. OLANZAPINE [Concomitant]
  2. CLOZAPINE [Suspect]
     Indication: ALCOHOL INDUCED PERSISTING DEMENTIA
  3. CLOZAPINE [Suspect]
     Indication: SCHIZOPHRENIA
     Dosage: 125 MG, UNK
     Dates: start: 19980101
  4. RANITIDINE [Concomitant]
  5. FLUPENTIXOL [Concomitant]

REACTIONS (5)
  - HYPOTENSION [None]
  - DISORIENTATION [None]
  - DIZZINESS [None]
  - MEMORY IMPAIRMENT [None]
  - DEMENTIA [None]
